FAERS Safety Report 10835186 (Version 1)
Quarter: 2015Q1

REPORT INFORMATION
  Report Type: Spontaneous
  Country: US (occurrence: US)
  Receive Date: 20150219
  Receipt Date: 20150219
  Transmission Date: 20150721
  Serious: Yes (Other)
  Sender: FDA-Public Use
  Company Number: US-APOTEX-2015AP006687

PATIENT
  Age: 8 Year
  Sex: Male

DRUGS (1)
  1. PAROXETINE HYDROCHLORIDE. [Suspect]
     Active Substance: PAROXETINE HYDROCHLORIDE
     Indication: DEPRESSION
     Dosage: UNK
     Route: 064

REACTIONS (8)
  - Hydrocephalus [Unknown]
  - Foetal exposure during pregnancy [Unknown]
  - Cerebral ventricle dilatation [Unknown]
  - Abdominal pain [Unknown]
  - Vomiting [Unknown]
  - Diarrhoea haemorrhagic [Unknown]
  - Pneumonia [Unknown]
  - Asthma [Unknown]

NARRATIVE: CASE EVENT DATE: 20110102
